FAERS Safety Report 5701281-4 (Version None)
Quarter: 2008Q2

REPORT INFORMATION
  Report Type: 
  Country: None (occurrence: None)
  Receive Date: 20080410
  Receipt Date: 20080401
  Transmission Date: 20081010
  Serious: Yes (Other)
  Sender: FDA-Public Use
  Company Number: US-PFIZER INC-2008029155

PATIENT
  Sex: Female
  Weight: 65.8 kg

DRUGS (1)
  1. LIPITOR [Suspect]
     Indication: HYPERCHOLESTEROLAEMIA
     Dates: start: 20070301, end: 20070601

REACTIONS (3)
  - BLOOD CHOLESTEROL INCREASED [None]
  - GAIT DISTURBANCE [None]
  - OEDEMA PERIPHERAL [None]
